FAERS Safety Report 12345825 (Version 1)
Quarter: 2016Q2

REPORT INFORMATION
  Report Type: Spontaneous
  Country: KR (occurrence: KR)
  Receive Date: 20160509
  Receipt Date: 20160509
  Transmission Date: 20160815
  Serious: Yes (Hospitalization, Other)
  Sender: FDA-Public Use
  Company Number: KR-ACCORD-040245

PATIENT
  Age: 78 Year
  Sex: Female

DRUGS (4)
  1. ISOSORBIDE. [Concomitant]
     Active Substance: ISOSORBIDE
     Indication: PERCUTANEOUS CORONARY INTERVENTION
  2. CLOPIDOGREL [Suspect]
     Active Substance: CLOPIDOGREL BISULFATE
     Indication: PERCUTANEOUS CORONARY INTERVENTION
     Dates: start: 201109
  3. SIMVASTATIN. [Concomitant]
     Active Substance: SIMVASTATIN
     Indication: PERCUTANEOUS CORONARY INTERVENTION
  4. SITAGLIPTIN/SITAGLIPTIN PHOSPHATE [Concomitant]
     Indication: PERCUTANEOUS CORONARY INTERVENTION

REACTIONS (4)
  - Pruritus [Recovered/Resolved]
  - Myelodysplastic syndrome [Unknown]
  - Hypersensitivity [Recovered/Resolved]
  - Skin lesion [Recovered/Resolved]

NARRATIVE: CASE EVENT DATE: 201310
